FAERS Safety Report 4754363-8 (Version None)
Quarter: 2005Q3

REPORT INFORMATION
  Report Type: 
  Country: None (occurrence: None)
  Receive Date: 20050825
  Receipt Date: 20050817
  Transmission Date: 20060218
  Serious: Yes (Disabling)
  Sender: FDA-Public Use
  Company Number: 2005RL000105

PATIENT
  Age: 74 Year
  Sex: Male

DRUGS (9)
  1. OMACOR [Suspect]
     Dosage: 1 GM;BID;PO
     Route: 048
     Dates: start: 20050604, end: 20050620
  2. EMCOR (BISOPROLOL FUMARATE) [Suspect]
     Indication: MYOCARDIAL ISCHAEMIA
     Dosage: 2.5 MG;QD
     Dates: start: 20050604, end: 20050620
  3. BECLAZONE [Concomitant]
  4. ALBUTEROL SULFATE HFA [Concomitant]
  5. PLAVIX [Concomitant]
  6. ASPIRIN [Concomitant]
  7. TAMSULOSIN [Concomitant]
  8. VERAPAMIL [Concomitant]
  9. QUININE SULPHATE [Concomitant]

REACTIONS (3)
  - PLATELET COUNT DECREASED [None]
  - URTICARIA [None]
  - VASCULITIS [None]
